FAERS Safety Report 6675851-3 (Version None)
Quarter: 2010Q2

REPORT INFORMATION
  Report Type: 
  Country: None (occurrence: None)
  Receive Date: 20100412
  Receipt Date: 20100331
  Transmission Date: 20101027
  Serious: Yes (Hospitalization)
  Sender: FDA-Public Use
  Company Number: 2008BI009048

PATIENT
  Age: 23 Year
  Sex: Male

DRUGS (7)
  1. TYSABRI [Suspect]
     Indication: RELAPSING-REMITTING MULTIPLE SCLEROSIS
     Route: 042
     Dates: start: 20060901, end: 20100201
  2. METHYLPREDNISOLONE [Concomitant]
     Indication: MULTIPLE SCLEROSIS RELAPSE
     Dates: start: 20050501, end: 20070616
  3. LISINOPRIL [Concomitant]
     Indication: HYPERTENSION
     Dates: start: 20060201, end: 20070801
  4. VERAHEXAL [Concomitant]
     Indication: SINUS TACHYCARDIA
     Dates: start: 20060501, end: 20070601
  5. VERAHEXAL [Concomitant]
     Indication: HYPERTENSION
     Dates: start: 20060501, end: 20070601
  6. AMANTADINE HCL [Concomitant]
     Indication: FATIGUE
     Dates: start: 20070101, end: 20070901
  7. CIPRALEX [Concomitant]
     Indication: DEPRESSION
     Dates: start: 20061201, end: 20070401

REACTIONS (1)
  - OSTEONECROSIS [None]
